FAERS Safety Report 6393310-2 (Version None)
Quarter: 2009Q4

REPORT INFORMATION
  Report Type: 
  Country: None (occurrence: None)
  Receive Date: 20091008
  Receipt Date: 20091008
  Transmission Date: 20100525
  Serious: Yes (Hospitalization)
  Sender: FDA-Public Use
  Company Number: PHHO2009US06619

PATIENT
  Sex: Male
  Weight: 89.9 kg

DRUGS (6)
  1. ALISKIREN ALI+TAB+HT [Suspect]
     Indication: ESSENTIAL HYPERTENSION
     Dosage: 300 MG, QD
     Route: 048
     Dates: start: 20080519, end: 20090523
  2. HUMALOG [Concomitant]
  3. LANTUS [Concomitant]
  4. CENTRUM SILVER [Concomitant]
  5. ASPIRIN [Concomitant]
  6. VYTORIN [Concomitant]

REACTIONS (8)
  - ANGIOEDEMA [None]
  - ASTHMA [None]
  - DYSPHAGIA [None]
  - DYSPNOEA [None]
  - LARYNGEAL OEDEMA [None]
  - LARYNGITIS [None]
  - LOCAL SWELLING [None]
  - ODYNOPHAGIA [None]
